FAERS Safety Report 5691145-7 (Version None)
Quarter: 2008Q2

REPORT INFORMATION
  Report Type: 
  Country: None (occurrence: None)
  Receive Date: 20080402
  Receipt Date: 20080331
  Transmission Date: 20081010
  Serious: Yes (Other)
  Sender: FDA-Public Use
  Company Number: US-RB-005293-07

PATIENT
  Sex: Female

DRUGS (4)
  1. SUBUTEX [Suspect]
     Route: 060
     Dates: start: 20070220, end: 20070222
  2. SUBOXONE [Suspect]
     Route: 060
     Dates: start: 20070223
  3. SUBOXONE [Suspect]
     Route: 060
     Dates: start: 20050912, end: 20070219
  4. CONTRACEPTIVE PATCH [Concomitant]
     Indication: CONTRACEPTION
     Dosage: UNKNOWN DOSE
     Route: 062

REACTIONS (2)
  - ABORTION SPONTANEOUS [None]
  - DRUG EXPOSURE DURING PREGNANCY [None]
